FAERS Safety Report 24107227 (Version 2)
Quarter: 2024Q3

REPORT INFORMATION
  Report Type: Spontaneous
  Country: GB (occurrence: GB)
  Receive Date: 20240718
  Receipt Date: 20240722
  Transmission Date: 20241016
  Serious: Yes (Other)
  Sender: CELLTRION
  Company Number: GB-CELLTRION INC.-2024GB016911

PATIENT

DRUGS (1)
  1. INFLIXIMAB [Suspect]
     Active Substance: INFLIXIMAB
     Indication: Crohn^s disease
     Dosage: 120 MILLIGRAM PRE FILLED PEN PK2
     Route: 058
     Dates: start: 202406

REACTIONS (4)
  - Supraventricular tachycardia [Unknown]
  - Post procedural contusion [Unknown]
  - Contusion [Unknown]
  - Intentional dose omission [Unknown]
